FAERS Safety Report 7353189-9 (Version None)
Quarter: 2011Q1

REPORT INFORMATION
  Report Type: 
  Country: None (occurrence: None)
  Receive Date: 20110315
  Receipt Date: 20110303
  Transmission Date: 20110831
  Serious: Yes (Hospitalization)
  Sender: FDA-Public Use
  Company Number: BR-GENENTECH-314884

PATIENT
  Sex: Female
  Weight: 72.8 kg

DRUGS (10)
  1. METICORTEN [Concomitant]
     Dosage: 20 MG, UNK
  2. ENDOFOLIN [Concomitant]
     Indication: PRODUCT USED FOR UNKNOWN INDICATION
     Dosage: 5 MG, UNK
  3. METHOTREXATE [Concomitant]
     Indication: PRODUCT USED FOR UNKNOWN INDICATION
     Dosage: UNK
  4. CAPTOPRIL [Concomitant]
     Indication: PRODUCT USED FOR UNKNOWN INDICATION
     Dosage: 50 MG, UNK
  5. METICORTEN [Concomitant]
     Dosage: UNK
  6. ZOFRAN [Concomitant]
     Indication: PREMEDICATION
     Dosage: UNK
  7. RITUXIMAB [Suspect]
     Indication: WEGENER'S GRANULOMATOSIS
     Dosage: UNK
     Route: 042
     Dates: start: 20100719, end: 20100802
  8. METICORTEN [Concomitant]
     Indication: PRODUCT USED FOR UNKNOWN INDICATION
     Dosage: 20 MG, UNK
  9. METFORMIN [Concomitant]
     Indication: PRODUCT USED FOR UNKNOWN INDICATION
     Dosage: 850 MG, UNK
  10. GARDENAL [Concomitant]
     Indication: CONVULSION
     Dosage: 100 MG, UNK

REACTIONS (3)
  - BLOOD SODIUM ABNORMAL [None]
  - BLOOD POTASSIUM ABNORMAL [None]
  - WEIGHT DECREASED [None]
